FAERS Safety Report 5246239-7 (Version None)
Quarter: 2007Q1

REPORT INFORMATION
  Report Type: 
  Country: None (occurrence: None)
  Receive Date: 20070221
  Receipt Date: 20070209
  Transmission Date: 20070707
  Serious: Yes (Hospitalization)
  Sender: FDA-Public Use
  Company Number: GXKR2007SE01572

PATIENT
  Sex: Female

DRUGS (2)
  1. METFORMIN (NGX)(METFORMIN) TABLET, 500MG [Suspect]
     Indication: DIABETES MELLITUS
  2. NOVOMIX 30 (INSULIN ASPART, PROTAMINE INSULIN ASPART) [Concomitant]

REACTIONS (6)
  - HYPOGLYCAEMIA [None]
  - INTENTIONAL OVERDOSE [None]
  - INTENTIONAL SELF-INJURY [None]
  - LACTIC ACIDOSIS [None]
  - SOMNOLENCE [None]
  - VOMITING [None]
